FAERS Safety Report 13098317 (Version 3)
Quarter: 2019Q2

REPORT INFORMATION
  Report Type: Spontaneous
  Country: US (occurrence: US)
  Receive Date: 20170109
  Receipt Date: 20190626
  Transmission Date: 20190711
  Serious: No
  Sender: FDA-Public Use
  Company Number: US-PFIZER INC-2017007900

PATIENT
  Age: 17 Year
  Sex: Male

DRUGS (1)
  1. PRISTIQ EXTENDED-RELEASE [Suspect]
     Active Substance: DESVENLAFAXINE SUCCINATE
     Dosage: 75 MG, DAILY (50MG IN THE MORNING AND 25MG AT NIGHT)

REACTIONS (4)
  - Off label use [Unknown]
  - Product use issue [Unknown]
  - Malaise [Unknown]
  - Migraine [Unknown]
